FAERS Safety Report 12365995 (Version 2)
Quarter: 2016Q2

REPORT INFORMATION
  Report Type: Spontaneous
  Country: DE (occurrence: DE)
  Receive Date: 20160513
  Receipt Date: 20160603
  Transmission Date: 20160815
  Serious: Yes (Other)
  Sender: FDA-Public Use
  Company Number: DE-009507513-1605DEU004612

PATIENT
  Age: 51 Year
  Sex: Female
  Weight: 98 kg

DRUGS (9)
  1. METFORMIN [Concomitant]
     Active Substance: METFORMIN HYDROCHLORIDE
     Dosage: 0.5 TABLET, BID
     Route: 048
  2. VALSARTAN. [Concomitant]
     Active Substance: VALSARTAN
     Indication: HYPERTENSION
     Dosage: 0.5 TABLET, BID
     Route: 048
     Dates: start: 2014
  3. METOPROLOL. [Concomitant]
     Active Substance: METOPROLOL
     Dosage: 1.5 TABLET DAILY
     Route: 048
  4. ALDACTONE [Concomitant]
     Active Substance: SPIRONOLACTONE
     Dosage: 1 TABLET DAILY
     Route: 048
  5. ATOZET 10 MG/20 MG [Suspect]
     Active Substance: ATORVASTATIN CALCIUM\EZETIMIBE
     Indication: HYPERCHOLESTEROLAEMIA
     Dosage: 10/20 MG ONCE DAILY
     Route: 048
     Dates: start: 201603, end: 20160403
  6. TORSEMIDE. [Concomitant]
     Active Substance: TORSEMIDE
     Dosage: ONE A DAY
  7. PANTOPRAZOLE [Concomitant]
     Active Substance: PANTOPRAZOLE SODIUM
     Dosage: 1 TABLET DAILY
     Route: 048
  8. ASPIRIN. [Concomitant]
     Active Substance: ASPIRIN
     Dosage: 1 TABLET DAILY
     Route: 048
  9. XELEVIA [Concomitant]
     Active Substance: SITAGLIPTIN PHOSPHATE
     Dosage: 1 TABLET DAILY
     Route: 048

REACTIONS (3)
  - Pancreatitis acute [Recovered/Resolved]
  - Malaise [Recovered/Resolved]
  - Pancreatitis [Recovered/Resolved]

NARRATIVE: CASE EVENT DATE: 201603
